FAERS Safety Report 18910427 (Version 1)
Quarter: 2021Q1

REPORT INFORMATION
  Report Type: Spontaneous
  Country: US (occurrence: US)
  Receive Date: 20210218
  Receipt Date: 20210218
  Transmission Date: 20210420
  Serious: Yes (Death)
  Sender: FDA-Public Use
  Company Number: None

PATIENT
  Age: 66 Year
  Sex: Female
  Weight: 71 kg

DRUGS (1)
  1. IMFINZI [Suspect]
     Active Substance: DURVALUMAB
     Indication: LUNG NEOPLASM MALIGNANT
     Dosage: ?          OTHER FREQUENCY:Q 14 DAYS;?
     Route: 042
     Dates: start: 20201118

REACTIONS (16)
  - Bacterial infection [None]
  - Hypotension [None]
  - Pulseless electrical activity [None]
  - Pleural effusion [None]
  - Aspartate aminotransferase increased [None]
  - Lactic acidosis [None]
  - Pulmonary embolism [None]
  - Alanine aminotransferase increased [None]
  - Hyperphosphataemia [None]
  - Dyspnoea exertional [None]
  - Metabolic acidosis [None]
  - Cardiac failure congestive [None]
  - Hyperkalaemia [None]
  - Pneumonitis [None]
  - Viral infection [None]
  - Cardio-respiratory arrest [None]

NARRATIVE: CASE EVENT DATE: 20210208
